FAERS Safety Report 4520644-6 (Version None)
Quarter: 2004Q4

REPORT INFORMATION
  Report Type: 
  Country: None (occurrence: None)
  Receive Date: 20041203
  Receipt Date: 20041124
  Transmission Date: 20050328
  Serious: Yes (Disabling)
  Sender: FDA-Public Use
  Company Number: TPA2004A01479

PATIENT
  Age: 57 Year
  Sex: Female
  Weight: 88.4514 kg

DRUGS (3)
  1. ACTOS [Suspect]
     Indication: DIABETES MELLITUS NON-INSULIN-DEPENDENT
     Dosage: 45MG, 1 IN 1 D, PER ORAL
     Route: 048
     Dates: start: 19990101
  2. TRICOR [Concomitant]
  3. GLUCOPHAGE [Concomitant]

REACTIONS (1)
  - MUSCLE STRAIN [None]
